FAERS Safety Report 4667765-5 (Version None)
Quarter: 2005Q2

REPORT INFORMATION
  Report Type: 
  Country: None (occurrence: None)
  Receive Date: 20050520
  Receipt Date: 20050519
  Transmission Date: 20051028
  Serious: Yes (Other)
  Sender: FDA-Public Use
  Company Number: US-GLAXOSMITHKLINE-A0559348A

PATIENT
  Age: 76 Year
  Sex: Male

DRUGS (4)
  1. AVANDIA [Suspect]
     Dosage: 4MG PER DAY
     Route: 048
     Dates: start: 20050501
  2. TIMOPTIC [Concomitant]
  3. VITAMINS [Concomitant]
  4. MINERAL TAB [Concomitant]

REACTIONS (3)
  - BENIGN PROSTATIC HYPERPLASIA [None]
  - PROSTATIC HAEMORRHAGE [None]
  - URINARY TRACT INFECTION [None]
